APPROVED DRUG PRODUCT: PALONOSETRON HYDROCHLORIDE
Active Ingredient: PALONOSETRON HYDROCHLORIDE
Strength: EQ 0.25MG BASE/5ML (EQ 0.05MG BASE/ML)
Dosage Form/Route: INJECTABLE;INTRAVENOUS
Application: A202951 | Product #002 | TE Code: AP
Applicant: AVET LIFESCIENCES LTD
Approved: Jun 29, 2021 | RLD: No | RS: No | Type: RX